FAERS Safety Report 18871603 (Version 1)
Quarter: 2021Q1

REPORT INFORMATION
  Report Type: Spontaneous
  Country: US (occurrence: US)
  Receive Date: 20210210
  Receipt Date: 20210210
  Transmission Date: 20210420
  Serious: No
  Sender: FDA-Public Use
  Company Number: US-ALLERGAN-2043557US

PATIENT
  Age: 13 Year
  Sex: Female

DRUGS (1)
  1. TAZAROTENE ? BP [Suspect]
     Active Substance: TAZAROTENE
     Indication: ACNE
     Dosage: 0.1 %, QHS
     Route: 061
     Dates: start: 20200922

REACTIONS (2)
  - Acne [Unknown]
  - Drug ineffective [Unknown]
